FAERS Safety Report 6918211-X (Version None)
Quarter: 2010Q3

REPORT INFORMATION
  Report Type: 
  Country: None (occurrence: None)
  Receive Date: 20100806
  Receipt Date: 20100726
  Transmission Date: 20110219
  Serious: Yes (Hospitalization, Other)
  Sender: FDA-Public Use
  Company Number: 7004606

PATIENT
  Age: 60 Year
  Sex: Female

DRUGS (10)
  1. REBIF [Suspect]
     Indication: PRIMARY PROGRESSIVE MULTIPLE SCLEROSIS
     Dosage: 8.8 MCG, 3 IN 1 WK, SUBCUTANEOUS, 44 MCG, 3 IN 1 WK, SUBCUTANEOUS
     Route: 058
     Dates: start: 20100101, end: 20100101
  2. REBIF [Suspect]
     Indication: PRIMARY PROGRESSIVE MULTIPLE SCLEROSIS
     Dosage: 8.8 MCG, 3 IN 1 WK, SUBCUTANEOUS, 44 MCG, 3 IN 1 WK, SUBCUTANEOUS
     Route: 058
     Dates: start: 20100426, end: 20100101
  3. REBIF [Suspect]
     Indication: PRIMARY PROGRESSIVE MULTIPLE SCLEROSIS
     Dosage: 8.8 MCG, 3 IN 1 WK, SUBCUTANEOUS, 44 MCG, 3 IN 1 WK, SUBCUTANEOUS
     Route: 058
     Dates: start: 20100101, end: 20100501
  4. MORPHINE [Concomitant]
  5. LORTAB (VICODIN) [Concomitant]
  6. AMANTADINE [Concomitant]
  7. BACLOFEN [Concomitant]
  8. DILANTIN [Concomitant]
  9. GABAPENTIN [Concomitant]
  10. LYRICA [Concomitant]

REACTIONS (9)
  - CONFUSIONAL STATE [None]
  - CONSTIPATION [None]
  - DEHYDRATION [None]
  - FLUID INTAKE REDUCED [None]
  - GRAND MAL CONVULSION [None]
  - HALLUCINATION [None]
  - HEPATIC ENZYME INCREASED [None]
  - MULTIPLE SCLEROSIS RELAPSE [None]
  - URINARY TRACT INFECTION [None]
